FAERS Safety Report 16110944 (Version 1)
Quarter: 2019Q1

REPORT INFORMATION
  Report Type: Spontaneous
  Country: US (occurrence: US)
  Receive Date: 20190325
  Receipt Date: 20190325
  Transmission Date: 20190418
  Serious: No
  Sender: FDA-Public Use
  Company Number: US-BEH-2019100773

PATIENT
  Sex: Female

DRUGS (11)
  1. NUVARING [Concomitant]
     Active Substance: ETHINYL ESTRADIOL\ETONOGESTREL
  2. SINGULAIR [Concomitant]
     Active Substance: MONTELUKAST SODIUM
  3. MULTIVITAMIN                       /00097801/ [Concomitant]
     Active Substance: VITAMINS
  4. ADVAIR HFA [Concomitant]
     Active Substance: FLUTICASONE PROPIONATE\SALMETEROL XINAFOATE
  5. THEANINE [Concomitant]
     Active Substance: THEANINE
  6. CALCIUM [Concomitant]
     Active Substance: CALCIUM
  7. XYZAL [Concomitant]
     Active Substance: LEVOCETIRIZINE DIHYDROCHLORIDE
  8. HIZENTRA [Suspect]
     Active Substance: HUMAN IMMUNOGLOBULIN G
     Indication: SELECTIVE IGG SUBCLASS DEFICIENCY
     Dosage: FREQUENCY: NEVER FILLED
     Route: 065
     Dates: end: 201903
  9. MAGNESIUM [Concomitant]
     Active Substance: MAGNESIUM
  10. PROPANOLOL                         /00030002/ [Concomitant]
     Active Substance: PROPRANOLOL HYDROCHLORIDE
  11. ALLERGY                            /00000402/ [Concomitant]

REACTIONS (3)
  - Infusion site erythema [Recovered/Resolved]
  - Infusion site swelling [Recovered/Resolved]
  - Infusion site reaction [Recovered/Resolved]
